APPROVED DRUG PRODUCT: MEVACOR
Active Ingredient: LOVASTATIN
Strength: 20MG **Federal Register notice that product was not discontinued or withdrawn for safety or effectiveness reasons**
Dosage Form/Route: TABLET;ORAL
Application: N019643 | Product #003
Applicant: MERCK RESEARCH LABORATORIES DIV MERCK CO INC
Approved: Aug 31, 1987 | RLD: Yes | RS: No | Type: DISCN